FAERS Safety Report 5155367-6 (Version None)
Quarter: 2006Q4

REPORT INFORMATION
  Report Type: 
  Country: None (occurrence: None)
  Receive Date: 20061114
  Receipt Date: 20061030
  Transmission Date: 20070319
  Serious: Yes (Hospitalization)
  Sender: FDA-Public Use
  Company Number: 2006MP001166

PATIENT
  Age: 81 Year
  Sex: Male
  Weight: 87.0906 kg

DRUGS (6)
  1. DACOGEN [Suspect]
     Indication: MYELODYSPLASTIC SYNDROME
     Dosage: 20 MG/M**2;QD;IV
     Route: 042
     Dates: start: 20061016, end: 20061020
  2. NIACIN [Concomitant]
  3. FOLIC ACID [Concomitant]
  4. ZOCOR [Concomitant]
  5. ZOLOFT [Concomitant]
  6. VITAMIN CAP [Concomitant]

REACTIONS (2)
  - CONDITION AGGRAVATED [None]
  - PULMONARY FIBROSIS [None]
